FAERS Safety Report 14441204 (Version 2)
Quarter: 2018Q1

REPORT INFORMATION
  Report Type: Spontaneous
  Country: US (occurrence: US)
  Receive Date: 20180125
  Receipt Date: 20180125
  Transmission Date: 20180509
  Serious: Yes (Death, Hospitalization)
  Sender: FDA-Public Use
  Company Number: US-CELGENEUS-USA-20180108437

PATIENT
  Age: 53 Year
  Sex: Male

DRUGS (4)
  1. VIDAZA [Suspect]
     Active Substance: AZACITIDINE
     Indication: OFF LABEL USE
  2. VIDAZA [Suspect]
     Active Substance: AZACITIDINE
     Indication: COLORECTAL CANCER
     Dosage: 100 MILLIGRAM
     Route: 058
     Dates: start: 20171012, end: 20171019
  3. PEMBROLIZUMAB (MK-3475) [Suspect]
     Active Substance: PEMBROLIZUMAB
     Indication: COLORECTAL CANCER
     Dosage: 200 MILLIGRAM
     Route: 041
     Dates: start: 20171019, end: 20171019
  4. INCB052793 [Suspect]
     Active Substance: INVESTIGATIONAL PRODUCT
     Indication: COLORECTAL CANCER
     Dosage: 100 MILLIGRAM
     Route: 048
     Dates: start: 20171019

REACTIONS (4)
  - Urinary retention [Not Recovered/Not Resolved]
  - Back pain [Not Recovered/Not Resolved]
  - Colorectal cancer [Fatal]
  - Atrial fibrillation [Recovered/Resolved]

NARRATIVE: CASE EVENT DATE: 20171019
